FAERS Safety Report 24877703 (Version 1)
Quarter: 2025Q1

REPORT INFORMATION
  Report Type: Spontaneous
  Country: CZ (occurrence: CZ)
  Receive Date: 20250123
  Receipt Date: 20250123
  Transmission Date: 20250409
  Serious: Yes (Life-Threatening, Hospitalization)
  Sender: ACCORD
  Company Number: CZ-MLMSERVICE-20250107-PI340012-00043-1

PATIENT
  Age: 72 Year
  Sex: Female

DRUGS (12)
  1. ALLOPURINOL [Suspect]
     Active Substance: ALLOPURINOL
     Indication: Product used for unknown indication
     Dates: start: 202312, end: 2024
  2. DAPAGLIFLOZIN [Suspect]
     Active Substance: DAPAGLIFLOZIN
     Indication: Product used for unknown indication
     Dates: start: 202312
  3. EZETIMIBE [Concomitant]
     Active Substance: EZETIMIBE
     Indication: Hyperlipidaemia
  4. DULAGLUTIDE [Concomitant]
     Active Substance: DULAGLUTIDE
     Route: 058
  5. METFORMIN [Concomitant]
     Active Substance: METFORMIN HYDROCHLORIDE
     Dates: end: 202401
  6. GLIQUIDONE [Concomitant]
     Active Substance: GLIQUIDONE
  7. FOSINOPRIL [Concomitant]
     Active Substance: FOSINOPRIL
  8. FUROSEMIDE [Concomitant]
     Active Substance: FUROSEMIDE
  9. BETAXOLOL [Concomitant]
     Active Substance: BETAXOLOL
  10. POTASSIUM CHLORATE [Concomitant]
     Active Substance: POTASSIUM CHLORATE
  11. DIOSMIN\HESPERIDIN [Concomitant]
     Active Substance: DIOSMIN\HESPERIDIN
  12. ALLOPURINOL [Suspect]
     Active Substance: ALLOPURINOL
     Indication: Product used for unknown indication
     Dates: start: 20240106, end: 20240109

REACTIONS (14)
  - Drug reaction with eosinophilia and systemic symptoms [Recovered/Resolved]
  - Acute kidney injury [Recovered/Resolved]
  - Tubulointerstitial nephritis [Recovered/Resolved]
  - Nephroangiosclerosis [Recovered/Resolved]
  - Hyperuricaemia [Recovered/Resolved]
  - Hyperkalaemia [Recovered/Resolved]
  - Hypervolaemia [Recovered/Resolved]
  - Morganella infection [Unknown]
  - Enterococcal infection [Unknown]
  - Proteus infection [Unknown]
  - Escherichia infection [Unknown]
  - Klebsiella infection [Unknown]
  - Serratia infection [Unknown]
  - Pseudomonas infection [Unknown]

NARRATIVE: CASE EVENT DATE: 20240101
